FAERS Safety Report 14169740 (Version 1)
Quarter: 2017Q4

REPORT INFORMATION
  Report Type: Spontaneous
  Country: US (occurrence: None)
  Receive Date: 20171107
  Receipt Date: 20171107
  Transmission Date: 20180321
  Serious: Yes (Other)
  Sender: FDA-Public Use
  Company Number: None

PATIENT
  Age: 92 Year
  Sex: Female

DRUGS (1)
  1. IBRANCE [Suspect]
     Active Substance: PALBOCICLIB
     Indication: PLASMA CELL MYELOMA
     Route: 048
     Dates: start: 20171003, end: 20171020

REACTIONS (2)
  - Therapy cessation [None]
  - Pancytopenia [None]

NARRATIVE: CASE EVENT DATE: 201710
